FAERS Safety Report 17953416 (Version 5)
Quarter: 2020Q4

REPORT INFORMATION
  Report Type: Spontaneous
  Country: FR (occurrence: FR)
  Receive Date: 20200628
  Receipt Date: 20201008
  Transmission Date: 20210113
  Serious: Yes (Hospitalization, Other)
  Sender: FDA-Public Use
  Company Number: NVSC2020FR180670

PATIENT
  Age: 14 Year
  Sex: Male

DRUGS (23)
  1. FLUDARABINE PHOSPHATE. [Suspect]
     Active Substance: FLUDARABINE PHOSPHATE
     Indication: ACUTE MYELOID LEUKAEMIA REFRACTORY
  2. CYTARABINE. [Suspect]
     Active Substance: CYTARABINE
     Dosage: DURING INDUCTION THERAPY
     Route: 037
  3. CYTARABINE. [Suspect]
     Active Substance: CYTARABINE
     Dosage: 3 G/M2, Q12 (CONSOLIDATION)
     Route: 065
  4. METHOTREXATE. [Suspect]
     Active Substance: METHOTREXATE
     Indication: ACUTE MYELOID LEUKAEMIA
  5. CYTARABINE. [Suspect]
     Active Substance: CYTARABINE
     Indication: SALVAGE THERAPY
     Dosage: INDUCTION THERAPY ON DAY 1 AND 7
     Route: 065
  6. CYTARABINE. [Suspect]
     Active Substance: CYTARABINE
     Indication: ACUTE MYELOID LEUKAEMIA REFRACTORY
     Dosage: 3 MG/M2, Q12H (CONSOLIDATION THERAPY ON DAY 1, 4 AND 7)
     Route: 065
  7. GEMTUZUMAB OZOGAMICIN [Suspect]
     Active Substance: GEMTUZUMAB OZOGAMICIN
     Indication: SALVAGE THERAPY
     Dosage: 3X3 MG/M2 (SUPPLEMENTARY COURSE)
     Route: 042
  8. MITOXANTRONE [Suspect]
     Active Substance: MITOXANTRONE HYDROCHLORIDE
     Indication: ACUTE MYELOID LEUKAEMIA
     Dosage: 12 MG/M2 (INDUCTION THERAPY FROM DAY 1 TO 5 I.E. 60MG/2
     Route: 065
  9. FLUDARABINE PHOSPHATE. [Suspect]
     Active Substance: FLUDARABINE PHOSPHATE
     Indication: SALVAGE THERAPY
     Dosage: 30 MG/M2 OVER 30MIN ON DAYS 1 TO 5
     Route: 065
  10. GEMTUZUMAB OZOGAMICIN [Suspect]
     Active Substance: GEMTUZUMAB OZOGAMICIN
     Indication: ACUTE MYELOID LEUKAEMIA REFRACTORY
     Dosage: 3 MG/M2 ON DAYS 1, 4, AND 7 AS SALVAGE REGIMEN
     Route: 041
  11. DEXAMETHASONE. [Suspect]
     Active Substance: DEXAMETHASONE
     Indication: ACUTE MYELOID LEUKAEMIA
     Dosage: INDUCTION THERAPY ON DAY 1 AND 7
     Route: 037
  12. CYTARABINE. [Suspect]
     Active Substance: CYTARABINE
     Dosage: OVER 3 H ON DAYS 1 TO 5
     Route: 065
  13. METHOTREXATE. [Suspect]
     Active Substance: METHOTREXATE
     Indication: ACUTE MYELOID LEUKAEMIA
     Dosage: INDUCTION THERAPY ON DAY 1 AND 7
     Route: 037
  14. METHOTREXATE. [Suspect]
     Active Substance: METHOTREXATE
     Indication: CHEMOTHERAPY
  15. MITOXANTRONE [Suspect]
     Active Substance: MITOXANTRONE HYDROCHLORIDE
     Indication: CHEMOTHERAPY
  16. HYDROCORTISONE. [Suspect]
     Active Substance: HYDROCORTISONE
     Indication: ACUTE MYELOID LEUKAEMIA
     Dosage: UNK
     Route: 037
  17. AMSACRINE [Concomitant]
     Active Substance: AMSACRINE
     Indication: ACUTE MYELOID LEUKAEMIA
     Dosage: 100 MG/M2, QD (CONSOLIDATION THERAPY ON DAYS 1, 4 AND 7)
     Route: 065
  18. CYTARABINE. [Suspect]
     Active Substance: CYTARABINE
     Indication: ACUTE MYELOID LEUKAEMIA
     Dosage: 3X3 MG/M2 (SUPPLEMENTARY COURSE)
     Route: 065
  19. DEXAMETHASONE. [Suspect]
     Active Substance: DEXAMETHASONE
     Indication: CHEMOTHERAPY
  20. AMSACRINE [Concomitant]
     Active Substance: AMSACRINE
     Indication: CHEMOTHERAPY
  21. FLUDARABINE PHOSPHATE. [Suspect]
     Active Substance: FLUDARABINE PHOSPHATE
     Indication: ACUTE MYELOID LEUKAEMIA
     Dosage: 3X3 MG/M2 (SUPPLEMENTARY COURSE)
     Route: 065
  22. CYTARABINE. [Suspect]
     Active Substance: CYTARABINE
     Indication: CHEMOTHERAPY
     Dosage: 2000 MG/M2 ON DAYS 1 TO 5 AS SALVAGE REGIMEN
     Route: 065
  23. CYTARABINE. [Suspect]
     Active Substance: CYTARABINE
     Dosage: 200 MG/M2 DAILY; FOR 7 DAYS DURING INDUCTION THERAPY
     Route: 065

REACTIONS (5)
  - Off label use [Unknown]
  - Toxicity to various agents [Unknown]
  - Drug ineffective [Unknown]
  - Febrile neutropenia [Recovering/Resolving]
  - Drug resistance [Unknown]
